FAERS Safety Report 19646311 (Version 1)
Quarter: 2021Q3

REPORT INFORMATION
  Report Type: Other
  Country: PL (occurrence: PL)
  Receive Date: 20210802
  Receipt Date: 20210802
  Transmission Date: 20211014
  Serious: Yes (Death)
  Sender: FDA-Public Use
  Company Number: PL-ROCHE-2881376

PATIENT
  Age: 72 Year
  Sex: Female

DRUGS (8)
  1. CLEMASTINUM [Concomitant]
     Active Substance: CLEMASTINE FUMARATE
  2. PREDNISONE. [Concomitant]
     Active Substance: PREDNISONE
  3. AZATHIOPRINE. [Concomitant]
     Active Substance: AZATHIOPRINE
  4. METHYLPREDNISOLONE. [Concomitant]
     Active Substance: METHYLPREDNISOLONE
     Route: 042
  5. METHOTREXATE. [Concomitant]
     Active Substance: METHOTREXATE
  6. RITUXIMAB. [Suspect]
     Active Substance: RITUXIMAB
     Indication: CRYOGLOBULINAEMIA
     Dosage: 1 COURSE (2X 1000 MG)
     Route: 042
  7. ACETAMINOPHEN. [Concomitant]
     Active Substance: ACETAMINOPHEN
  8. CYCLOPHOSPHAMIDE. [Concomitant]
     Active Substance: CYCLOPHOSPHAMIDE

REACTIONS (2)
  - Drug ineffective [Unknown]
  - Cryoglobulinaemia [Fatal]
